FAERS Safety Report 5894290-6 (Version None)
Quarter: 2008Q3

REPORT INFORMATION
  Report Type: 
  Country: None (occurrence: None)
  Receive Date: 20080923
  Receipt Date: 20080411
  Transmission Date: 20090109
  Serious: No
  Sender: FDA-Public Use
  Company Number: US-ASTRAZENECA-2008UW07524

PATIENT
  Age: 46 Year
  Sex: Female
  Weight: 99.3 kg

DRUGS (6)
  1. SEROQUEL XR [Suspect]
     Indication: ANXIETY
     Route: 048
  2. SEROQUEL XR [Suspect]
     Indication: PANIC ATTACK
     Route: 048
  3. SEROQUEL XR [Suspect]
     Indication: BIPOLAR DISORDER
     Route: 048
  4. GEODON [Concomitant]
  5. LITHIUM CARBONATE [Concomitant]
  6. PERCOCET [Concomitant]

REACTIONS (1)
  - HALLUCINATION [None]
